FAERS Safety Report 8844514 (Version 1)
Quarter: 2012Q4

REPORT INFORMATION
  Report Type: Spontaneous
  Country: DK (occurrence: None)
  Receive Date: 20121012
  Receipt Date: 20121012
  Transmission Date: 20130627
  Serious: Yes (Hospitalization)
  Sender: FDA-Public Use
  Company Number: 2012MA012146

PATIENT
  Age: 15 Year
  Sex: Male

DRUGS (5)
  1. LEVETIRACETAM EXTENDED-RELEASE TABLETS [Suspect]
     Indication: FOCAL EPILEPSY
     Dates: start: 2011
  2. VIMPAT [Suspect]
     Indication: FOCAL EPILEPSY
     Dates: start: 2012
  3. FRISIUM [Concomitant]
  4. LAMICTAL [Concomitant]
  5. VALPROIC ACID [Concomitant]

REACTIONS (3)
  - Off label use [None]
  - Fatigue [None]
  - Irritability [None]
